FAERS Safety Report 4556157-5 (Version None)
Quarter: 2005Q1

REPORT INFORMATION
  Report Type: 
  Country: None (occurrence: None)
  Receive Date: 20050114
  Receipt Date: 20050111
  Transmission Date: 20050727
  Serious: Yes (Death, Other)
  Sender: FDA-Public Use
  Company Number: 2005008181

PATIENT
  Age: 80 Year
  Sex: Female

DRUGS (1)
  1. PHENYTOIN [Suspect]
     Indication: ILL-DEFINED DISORDER
     Dosage: 1 GRAM (1 GRAM, 1 IN 1 D), INTRAVENOUS
     Route: 042

REACTIONS (2)
  - DRUG LEVEL BELOW THERAPEUTIC [None]
  - SOMNOLENCE [None]
